FAERS Safety Report 7997772 (Version 2)
Quarter: 2012Q4

REPORT INFORMATION
  Report Type: 
  Country: US (occurrence: US)
  Receive Date: 20110620
  Receipt Date: 20121109
  Transmission Date: 20130627
  Serious: Yes (Hospitalization, Other)
  Sender: FDA-Public Use
  Company Number: US-ROCHE-735920

PATIENT
  Age: 36 None
  Sex: Male
  Weight: 77.1 kg

DRUGS (2)
  1. ACCUTANE [Suspect]
     Indication: ACNE
     Route: 065
     Dates: start: 199203, end: 19930602
  2. ACCUTANE [Suspect]
     Route: 065

REACTIONS (10)
  - Colitis ulcerative [Unknown]
  - Nausea [Unknown]
  - Abdominal pain [Unknown]
  - Rectal haemorrhage [Unknown]
  - Depression [Unknown]
  - Alcoholism [Not Recovered/Not Resolved]
  - Bipolar disorder [Unknown]
  - Epistaxis [Unknown]
  - Headache [Unknown]
  - Dry skin [Unknown]
